FAERS Safety Report 15943237 (Version 1)
Quarter: 2019Q1

REPORT INFORMATION
  Report Type: Spontaneous
  Country: US (occurrence: US)
  Receive Date: 20190117
  Receipt Date: 20190117
  Transmission Date: 20190417
  Serious: No
  Sender: FDA-Public Use
  Company Number: None

PATIENT
  Age: 22 Year
  Sex: Male

DRUGS (1)
  1. TRUVADA [Suspect]
     Active Substance: EMTRICITABINE\TENOFOVIR DISOPROXIL FUMARATE
     Indication: HIV INFECTION
     Dates: start: 201812

REACTIONS (5)
  - Product dose omission [None]
  - Fatigue [None]
  - Pain [None]
  - Condition aggravated [None]
  - Insurance issue [None]

NARRATIVE: CASE EVENT DATE: 20190112
